FAERS Safety Report 9659546 (Version 1)
Quarter: 2013Q4

REPORT INFORMATION
  Report Type: Report from Study
  Country: CA (occurrence: CA)
  Receive Date: 20131031
  Receipt Date: 20131031
  Transmission Date: 20140711
  Serious: Yes (Other)
  Sender: FDA-Public Use
  Company Number: CA-JNJFOC-20131017037

PATIENT
  Age: 27 Year
  Sex: Female
  Weight: 59.5 kg

DRUGS (7)
  1. REMICADE [Suspect]
     Indication: CROHN^S DISEASE
     Route: 042
     Dates: start: 20111013
  2. PREDNISONE [Concomitant]
     Route: 065
  3. VIT D [Concomitant]
     Route: 065
  4. PANTOLOC [Concomitant]
     Route: 065
  5. GRAVOL [Concomitant]
     Route: 065
  6. CALCIUM [Concomitant]
     Route: 065
  7. ONDANSETRON [Concomitant]
     Route: 065

REACTIONS (1)
  - Fistula [Recovered/Resolved]
